FAERS Safety Report 13583691 (Version 1)
Quarter: 2017Q2

REPORT INFORMATION
  Report Type: Spontaneous
  Country: US (occurrence: US)
  Receive Date: 20170526
  Receipt Date: 20170526
  Transmission Date: 20170830
  Serious: Yes (Hospitalization)
  Sender: FDA-Public Use
  Company Number: US-VIFOR (INTERNATIONAL) INC.-VIT-2017-05745

PATIENT
  Age: 64 Year
  Sex: Male

DRUGS (18)
  1. NOVOLOG [Concomitant]
     Active Substance: INSULIN ASPART
  2. ZOLOFT [Concomitant]
     Active Substance: SERTRALINE HYDROCHLORIDE
  3. KAYEXALATE [Concomitant]
     Active Substance: SODIUM POLYSTYRENE SULFONATE
  4. PROCRIT [Concomitant]
     Active Substance: ERYTHROPOIETIN
  5. NEPHROCAPS [Concomitant]
     Active Substance: ASCORBIC ACID\BIOTIN\CYANOCOBALAMIN\FOLIC ACID\NIACIN\PANTOTHENIC ACID\PYRIDOXINE\RIBOFLAVIN\THIAMINE
  6. SODIUM BICARBONATE. [Concomitant]
     Active Substance: SODIUM BICARBONATE
  7. NORCO [Concomitant]
     Active Substance: ACETAMINOPHEN\HYDROCODONE BITARTRATE
  8. NEURONTIN [Concomitant]
     Active Substance: GABAPENTIN
  9. KLONOPIN [Concomitant]
     Active Substance: CLONAZEPAM
  10. AMLODIPINE BESILATE [Concomitant]
     Active Substance: AMLODIPINE BESYLATE
  11. CALCIUM [Concomitant]
     Active Substance: CALCIUM
  12. VELTASSA [Suspect]
     Active Substance: PATIROMER
     Indication: END STAGE RENAL DISEASE
     Route: 048
     Dates: start: 20160712, end: 201705
  13. PHOSLO [Concomitant]
     Active Substance: CALCIUM ACETATE
  14. OXYBUTYNIN HYDROCHLORIDE [Concomitant]
     Active Substance: OXYBUTYNIN CHLORIDE
  15. METOPROLOL TARTRATE. [Concomitant]
     Active Substance: METOPROLOL TARTRATE
  16. HYDRALAZINE HYDROCHLORIDE. [Concomitant]
     Active Substance: HYDRALAZINE HYDROCHLORIDE
  17. STOOL SOFTENER (DOCUSATE) [Concomitant]
     Active Substance: DOCUSATE
  18. LASIX [Concomitant]
     Active Substance: FUROSEMIDE

REACTIONS (2)
  - Off label use [Unknown]
  - Renal failure [Unknown]

NARRATIVE: CASE EVENT DATE: 20160712
